FAERS Safety Report 11298595 (Version 1)
Quarter: 2015Q3

REPORT INFORMATION
  Report Type: Spontaneous
  Country: US (occurrence: US)
  Receive Date: 20150722
  Receipt Date: 20150722
  Transmission Date: 20151125
  Serious: No
  Sender: FDA-Public Use
  Company Number: US-ELI_LILLY_AND_COMPANY-US201111007244

PATIENT
  Sex: Female
  Weight: 135.69 kg

DRUGS (13)
  1. KLONOPIN [Concomitant]
     Active Substance: CLONAZEPAM
     Dosage: 0.5 MG, BID
  2. LASIX [Concomitant]
     Active Substance: FUROSEMIDE
     Dosage: 40 MG, PRN
  3. VICTOZA [Concomitant]
     Active Substance: LIRAGLUTIDE
     Dosage: 135 MG, QD
  4. CLONIDINE. [Concomitant]
     Active Substance: CLONIDINE
     Dosage: 0.1 MG, TID
  5. LISINOPRIL. [Concomitant]
     Active Substance: LISINOPRIL
     Dosage: 40 MG, QD
  6. LOVAZA [Concomitant]
     Active Substance: OMEGA-3-ACID ETHYL ESTERS
     Dosage: 2 MG, BID
  7. SYNTHROID [Concomitant]
     Active Substance: LEVOTHYROXINE SODIUM
     Dosage: 112 UG, QD
  8. HUMATROPE [Suspect]
     Active Substance: SOMATROPIN
     Dosage: 0.3 MG, QD
     Route: 058
  9. HUMATROPE [Suspect]
     Active Substance: SOMATROPIN
     Indication: HYPOTHALAMO-PITUITARY DISORDER
     Dosage: 0.3 MG, QD
     Route: 058
  10. LIPITOR [Concomitant]
     Active Substance: ATORVASTATIN CALCIUM
     Dosage: 10 MG, QD
  11. AMARYL [Concomitant]
     Active Substance: GLIMEPIRIDE
     Dosage: 4 MG, BID
  12. TRILIPIX [Concomitant]
     Active Substance: FENOFIBRIC ACID
     Dosage: 135 MG, QD
  13. LEVEMIR [Concomitant]
     Active Substance: INSULIN DETEMIR
     Dosage: 26 U, UNK

REACTIONS (2)
  - Drug dose omission [Recovered/Resolved]
  - Incorrect dose administered by device [Recovered/Resolved]
